FAERS Safety Report 25528513 (Version 1)
Quarter: 2025Q3

REPORT INFORMATION
  Report Type: Spontaneous
  Country: EU (occurrence: EU)
  Receive Date: 20250708
  Receipt Date: 20250708
  Transmission Date: 20251021
  Serious: Yes (Other)
  Sender: MYLAN
  Company Number: EU-MYLANLABS-2025M1055572

PATIENT
  Sex: Male

DRUGS (24)
  1. METHOTREXATE [Suspect]
     Active Substance: METHOTREXATE
     Indication: Dermatomyositis
  2. METHOTREXATE [Suspect]
     Active Substance: METHOTREXATE
     Route: 065
  3. METHOTREXATE [Suspect]
     Active Substance: METHOTREXATE
     Route: 065
  4. METHOTREXATE [Suspect]
     Active Substance: METHOTREXATE
  5. HYDROXYCHLOROQUINE [Suspect]
     Active Substance: HYDROXYCHLOROQUINE
     Indication: Dermatomyositis
  6. HYDROXYCHLOROQUINE [Suspect]
     Active Substance: HYDROXYCHLOROQUINE
     Route: 065
  7. HYDROXYCHLOROQUINE [Suspect]
     Active Substance: HYDROXYCHLOROQUINE
     Route: 065
  8. HYDROXYCHLOROQUINE [Suspect]
     Active Substance: HYDROXYCHLOROQUINE
  9. IMMUNE GLOBULIN NOS [Suspect]
     Active Substance: IMMUNE GLOBULIN NOS
     Indication: Dermatomyositis
  10. IMMUNE GLOBULIN NOS [Suspect]
     Active Substance: IMMUNE GLOBULIN NOS
     Route: 042
  11. IMMUNE GLOBULIN NOS [Suspect]
     Active Substance: IMMUNE GLOBULIN NOS
     Route: 042
  12. IMMUNE GLOBULIN NOS [Suspect]
     Active Substance: IMMUNE GLOBULIN NOS
  13. TOFACITINIB [Suspect]
     Active Substance: TOFACITINIB
     Indication: Dermatomyositis
  14. TOFACITINIB [Suspect]
     Active Substance: TOFACITINIB
     Route: 065
  15. TOFACITINIB [Suspect]
     Active Substance: TOFACITINIB
     Route: 065
  16. TOFACITINIB [Suspect]
     Active Substance: TOFACITINIB
  17. BARICITINIB [Suspect]
     Active Substance: BARICITINIB
     Indication: Dermatomyositis
  18. BARICITINIB [Suspect]
     Active Substance: BARICITINIB
     Route: 065
  19. BARICITINIB [Suspect]
     Active Substance: BARICITINIB
     Route: 065
  20. BARICITINIB [Suspect]
     Active Substance: BARICITINIB
  21. ANIFROLUMAB [Concomitant]
     Active Substance: ANIFROLUMAB
     Indication: Dermatomyositis
  22. ANIFROLUMAB [Concomitant]
     Active Substance: ANIFROLUMAB
     Route: 042
  23. ANIFROLUMAB [Concomitant]
     Active Substance: ANIFROLUMAB
     Route: 042
  24. ANIFROLUMAB [Concomitant]
     Active Substance: ANIFROLUMAB

REACTIONS (2)
  - Treatment failure [Unknown]
  - Off label use [Unknown]
